FAERS Safety Report 7334810-8 (Version None)
Quarter: 2011Q1

REPORT INFORMATION
  Report Type: 
  Country: None (occurrence: None)
  Receive Date: 20110307
  Receipt Date: 20110225
  Transmission Date: 20110831
  Serious: Yes (Other)
  Sender: FDA-Public Use
  Company Number: DE-JNJFOC-20110207656

PATIENT
  Sex: Male

DRUGS (2)
  1. LOPERAMIDE [Suspect]
     Indication: DIARRHOEA
     Route: 048
  2. MARCUMAR [Interacting]
     Indication: ILL-DEFINED DISORDER
     Route: 048

REACTIONS (2)
  - DRUG INTERACTION [None]
  - COAGULOPATHY [None]
